FAERS Safety Report 19969694 (Version 1)
Quarter: 2021Q4

REPORT INFORMATION
  Report Type: Spontaneous
  Country: GB (occurrence: GB)
  Receive Date: 20211019
  Receipt Date: 20211019
  Transmission Date: 20220304
  Serious: Yes (Disabling, Other)
  Sender: FDA-Public Use
  Company Number: GB-HOSPIRA-568156

PATIENT
  Age: 2 Year
  Sex: Female

DRUGS (2)
  1. GENTAMICIN SULFATE [Suspect]
     Active Substance: GENTAMICIN SULFATE
     Indication: Neutropenic sepsis
     Dosage: UNK
     Route: 042
  2. KANAMYCIN [Suspect]
     Active Substance: KANAMYCIN A SULFATE
     Indication: Neutropenic sepsis
     Dosage: UNK
     Route: 042

REACTIONS (2)
  - Deafness bilateral [Recovering/Resolving]
  - Deafness [Recovering/Resolving]
